FAERS Safety Report 5218832-9 (Version None)
Quarter: 2007Q1

REPORT INFORMATION
  Report Type: 
  Country: None (occurrence: None)
  Receive Date: 20070125
  Receipt Date: 20070117
  Transmission Date: 20070707
  Serious: Yes (Death, Other)
  Sender: FDA-Public Use
  Company Number: US-JNJFOC-20041005761

PATIENT
  Sex: Female
  Weight: 53 kg

DRUGS (7)
  1. REMICADE [Suspect]
     Indication: CROHN'S DISEASE
     Dosage: SUMMER 2003
     Route: 042
  2. MESALAMINE [Suspect]
     Indication: CROHN'S DISEASE
  3. 6MP [Suspect]
  4. 6MP [Suspect]
     Indication: CROHN'S DISEASE
  5. HYDROCORTISONE [Concomitant]
  6. PREDNISONE TAB [Concomitant]
  7. METRONIDAZOLE [Concomitant]

REACTIONS (21)
  - ABDOMINAL PAIN UPPER [None]
  - ALANINE AMINOTRANSFERASE INCREASED [None]
  - ANTINUCLEAR ANTIBODY POSITIVE [None]
  - ASPARTATE AMINOTRANSFERASE INCREASED [None]
  - AUTOIMMUNE HEPATITIS [None]
  - BLOOD ALKALINE PHOSPHATASE INCREASED [None]
  - DIARRHOEA [None]
  - GAMMA-GLUTAMYLTRANSFERASE INCREASED [None]
  - HEPATOSPLENOMEGALY [None]
  - MALAISE [None]
  - NON-HODGKIN'S LYMPHOMA [None]
  - PANCYTOPENIA [None]
  - PROTEIN TOTAL INCREASED [None]
  - PYREXIA [None]
  - SEPSIS [None]
  - SPLENOMEGALY [None]
  - T-CELL LYMPHOMA [None]
  - TRANSAMINASES INCREASED [None]
  - VEIN DISORDER [None]
  - WEIGHT DECREASED [None]
  - WHITE BLOOD CELL COUNT DECREASED [None]
